FAERS Safety Report 10413327 (Version 2)
Quarter: 2014Q3

REPORT INFORMATION
  Report Type: Spontaneous
  Country: US (occurrence: US)
  Receive Date: 20140827
  Receipt Date: 20140827
  Transmission Date: 20150326
  Serious: Yes (Hospitalization)
  Sender: FDA-Public Use
  Company Number: US-GLAXOSMITHKLINE-A0730972A

PATIENT
  Sex: Male
  Weight: 138.6 kg

DRUGS (4)
  1. AVANDIA [Suspect]
     Active Substance: ROSIGLITAZONE MALEATE
     Indication: TYPE 2 DIABETES MELLITUS
     Dosage: 8MG PER DAY
     Route: 048
     Dates: start: 20040901, end: 20070622
  2. INDAPAMIDE. [Concomitant]
     Active Substance: INDAPAMIDE
     Dates: start: 1992
  3. SIMVASTATIN. [Concomitant]
     Active Substance: SIMVASTATIN
  4. DIOVAN [Concomitant]
     Active Substance: VALSARTAN

REACTIONS (6)
  - Injury [Unknown]
  - Carotid artery stenosis [Unknown]
  - Hemiparesis [Unknown]
  - Cerebrovascular accident [Unknown]
  - Cerebral infarction [Unknown]
  - Pain [Unknown]
